FAERS Safety Report 8312967-X (Version None)
Quarter: 2012Q2

REPORT INFORMATION
  Report Type: 
  Country: None (occurrence: None)
  Receive Date: 20120426
  Receipt Date: 20120418
  Transmission Date: 20120825
  Serious: Yes (Other)
  Sender: FDA-Public Use
  Company Number: IN-ACCORD-013252

PATIENT

DRUGS (1)
  1. TOPIRAMATE [Suspect]

REACTIONS (1)
  - SOMNAMBULISM [None]
